FAERS Safety Report 24831047 (Version 3)
Quarter: 2025Q3

REPORT INFORMATION
  Report Type: Spontaneous
  Country: US (occurrence: US)
  Receive Date: 20250110
  Receipt Date: 20250809
  Transmission Date: 20251021
  Serious: Yes (Hospitalization, Other)
  Sender: ALEXION PHARMACEUTICALS
  Company Number: US-AstraZeneca-CH-00779061AP

PATIENT
  Age: 71 Year
  Sex: Female

DRUGS (6)
  1. SYMBICORT [Suspect]
     Active Substance: BUDESONIDE\FORMOTEROL FUMARATE DIHYDRATE
     Indication: Asthma
     Dates: start: 20241231, end: 20250102
  2. SYMBICORT [Suspect]
     Active Substance: BUDESONIDE\FORMOTEROL FUMARATE DIHYDRATE
     Indication: Chronic obstructive pulmonary disease
  3. BREZTRI [Suspect]
     Active Substance: BUDESONIDE\FORMOTEROL\GLYCOPYRROLATE
  4. MUCINEX [Concomitant]
     Active Substance: GUAIFENESIN
     Route: 065
  5. OXYCODONE [Concomitant]
     Active Substance: OXYCODONE
     Route: 065
  6. TYLENOL [Concomitant]
     Active Substance: ACETAMINOPHEN
     Route: 065

REACTIONS (12)
  - Groin abscess [Unknown]
  - Pneumonia [Unknown]
  - Feeling abnormal [Unknown]
  - Anxiety [Unknown]
  - Product after taste [Unknown]
  - Device malfunction [Unknown]
  - Drug dose omission by device [Unknown]
  - Dyspnoea [Unknown]
  - Diverticulum intestinal [Unknown]
  - Wrong technique in device usage process [Unknown]
  - Off label use [Unknown]
  - Device delivery system issue [Unknown]

NARRATIVE: CASE EVENT DATE: 20241101
